FAERS Safety Report 11475375 (Version 1)
Quarter: 2015Q3

REPORT INFORMATION
  Report Type: Spontaneous
  Country: US (occurrence: US)
  Receive Date: 20150909
  Receipt Date: 20150909
  Transmission Date: 20151125
  Serious: No
  Sender: FDA-Public Use
  Company Number: US-ASTRAZENECA-2015SE84166

PATIENT
  Sex: Female

DRUGS (1)
  1. METOPROLOL SUCCINATE. [Suspect]
     Active Substance: METOPROLOL SUCCINATE
     Indication: SUPRAVENTRICULAR TACHYCARDIA
     Route: 048
     Dates: start: 20150819

REACTIONS (3)
  - Drug ineffective [Unknown]
  - Heart rate increased [Unknown]
  - Supraventricular tachycardia [Unknown]
